FAERS Safety Report 5232848-8 (Version None)
Quarter: 2007Q1

REPORT INFORMATION
  Report Type: 
  Country: None (occurrence: None)
  Receive Date: 20070207
  Receipt Date: 20070129
  Transmission Date: 20070707
  Serious: Yes (Hospitalization)
  Sender: FDA-Public Use
  Company Number: BR-JNJFOC-20070201543

PATIENT
  Age: 45 Year
  Sex: Male

DRUGS (4)
  1. TRAMADOL HCL [Suspect]
     Indication: INTERVERTEBRAL DISC PROTRUSION
     Route: 065
  2. TRAMAL RETARD [Suspect]
     Indication: INTERVERTEBRAL DISC PROTRUSION
     Route: 065
  3. TRAMADOL HCL [Suspect]
     Route: 065
  4. DECADRON [Concomitant]
     Route: 065

REACTIONS (4)
  - INTERVERTEBRAL DISC OPERATION [None]
  - MUSCULAR WEAKNESS [None]
  - PARAESTHESIA [None]
  - PARALYSIS [None]
